FAERS Safety Report 7944028-3 (Version None)
Quarter: 2011Q4

REPORT INFORMATION
  Report Type: 
  Country: None (occurrence: None)
  Receive Date: 20111128
  Receipt Date: 20111118
  Transmission Date: 20120403
  Serious: Yes (Disabling)
  Sender: FDA-Public Use
  Company Number: GB-ASTRAZENECA-2011SE70021

PATIENT
  Age: 20 Year
  Sex: Female
  Weight: 57 kg

DRUGS (1)
  1. BUPIVACAINE HCL [Suspect]
     Indication: SPINAL ANAESTHESIA
     Route: 037
     Dates: start: 20111107, end: 20111107

REACTIONS (3)
  - HYPERSENSITIVITY [None]
  - SPINAL CORD OEDEMA [None]
  - ASTHENIA [None]
